FAERS Safety Report 7327367-9 (Version None)
Quarter: 2011Q1

REPORT INFORMATION
  Report Type: 
  Country: None (occurrence: None)
  Receive Date: 20110302
  Receipt Date: 20110203
  Transmission Date: 20110831
  Serious: No
  Sender: FDA-Public Use
  Company Number: US-B.I. PHARMACEUTICALS,INC./RIDGEFIELD-2011-BP-03547BP

PATIENT
  Sex: Female

DRUGS (4)
  1. RYTHMOL [Suspect]
     Indication: ARRHYTHMIA
     Dosage: 150 MG
     Route: 048
     Dates: start: 20110125
  2. PRADAXA [Suspect]
     Indication: ATRIAL FIBRILLATION
     Dosage: 300 MG
     Route: 048
     Dates: start: 20110125
  3. LIBRAX [Concomitant]
     Indication: IRRITABLE BOWEL SYNDROME
     Dates: start: 20080101
  4. LIBRAX [Concomitant]
     Indication: DIARRHOEA

REACTIONS (2)
  - CONSTIPATION [None]
  - DIARRHOEA [None]
